FAERS Safety Report 6804471-2 (Version None)
Quarter: 2010Q2

REPORT INFORMATION
  Report Type: 
  Country: None (occurrence: None)
  Receive Date: 20100628
  Receipt Date: 20070309
  Transmission Date: 20101027
  Serious: No
  Sender: FDA-Public Use
  Company Number: US-PFIZER INC-2007021189

PATIENT

DRUGS (3)
  1. GEODON [Suspect]
  2. DEPAKOTE [Concomitant]
  3. CLONOPIN [Concomitant]

REACTIONS (1)
  - AKATHISIA [None]
